FAERS Safety Report 22362078 (Version 2)
Quarter: 2024Q1

REPORT INFORMATION
  Report Type: Spontaneous
  Country: FR (occurrence: FR)
  Receive Date: 20230524
  Receipt Date: 20240229
  Transmission Date: 20240410
  Serious: Yes (Hospitalization)
  Sender: FDA-Public Use
  Company Number: None

PATIENT
  Age: 62 Year
  Sex: Female
  Weight: 77 kg

DRUGS (14)
  1. VORICONAZOLE [Suspect]
     Active Substance: VORICONAZOLE
     Dosage: 700 MG, 1X/DAY
     Route: 042
     Dates: start: 20230311, end: 20230330
  2. CLINDAMYCIN HYDROCHLORIDE [Suspect]
     Active Substance: CLINDAMYCIN HYDROCHLORIDE
     Indication: Febrile bone marrow aplasia
     Dosage: 2400 MG, 1X/DAY
     Route: 048
     Dates: start: 20230414, end: 20230420
  3. AMOXICILLIN [Suspect]
     Active Substance: AMOXICILLIN
     Indication: Febrile bone marrow aplasia
     Route: 048
     Dates: start: 20230315, end: 20230330
  4. CEFTRIAXONE [Suspect]
     Active Substance: CEFTRIAXONE\CEFTRIAXONE SODIUM
     Indication: Urinary tract infection
     Dosage: 2 G, 1X/DAY
     Route: 042
     Dates: start: 20230323, end: 20230329
  5. PYRIMETHAMINE [Suspect]
     Active Substance: PYRIMETHAMINE
     Indication: Eye infection toxoplasmal
     Dosage: 50 MG, 1X/DAY
     Route: 048
     Dates: start: 20230315, end: 20230330
  6. URAPIDIL [Concomitant]
     Active Substance: URAPIDIL
  7. METHYLPREDNISOLONE [Concomitant]
     Active Substance: METHYLPREDNISOLONE
  8. PANTOPRAZOLE [Concomitant]
     Active Substance: PANTOPRAZOLE
  9. ATOVAQUONE [Concomitant]
     Active Substance: ATOVAQUONE
  10. VALACYCLOVIR HYDROCHLORIDE [Concomitant]
     Active Substance: VALACYCLOVIR HYDROCHLORIDE
  11. LEUCOVORIN CALCIUM [Concomitant]
     Active Substance: LEUCOVORIN CALCIUM
  12. IRBESARTAN [Concomitant]
     Active Substance: IRBESARTAN
  13. LEVOTHYROXINE SODIUM [Concomitant]
     Active Substance: LEVOTHYROXINE SODIUM
  14. DULOXETINE HYDROCHLORIDE [Concomitant]
     Active Substance: DULOXETINE HYDROCHLORIDE

REACTIONS (3)
  - Hepatic cytolysis [Recovered/Resolved with Sequelae]
  - Off label use [Unknown]
  - Off label use [Unknown]

NARRATIVE: CASE EVENT DATE: 20230311
